FAERS Safety Report 7962560-3 (Version None)
Quarter: 2011Q4

REPORT INFORMATION
  Report Type: 
  Country: None (occurrence: None)
  Receive Date: 20111207
  Receipt Date: 20111128
  Transmission Date: 20120403
  Serious: Yes (Other)
  Sender: FDA-Public Use
  Company Number: SE-NOVOPROD-340419

PATIENT

DRUGS (1)
  1. VICTOZA [Suspect]
     Indication: TYPE 2 DIABETES MELLITUS
     Dosage: 0.6 MG, QD
     Route: 065
     Dates: start: 20110923

REACTIONS (5)
  - URTICARIA [None]
  - DIARRHOEA [None]
  - VENOUS THROMBOSIS LIMB [None]
  - DEHYDRATION [None]
  - VOMITING [None]
